FAERS Safety Report 12996530 (Version 1)
Quarter: 2016Q4

REPORT INFORMATION
  Report Type: Spontaneous
  Country: CA (occurrence: CA)
  Receive Date: 20161204
  Receipt Date: 20161204
  Transmission Date: 20170207
  Serious: Yes (Hospitalization)
  Sender: FDA-Public Use
  Company Number: CA-GLAXOSMITHKLINE-CA2016GSK177740

PATIENT
  Age: 55 Year
  Sex: Female
  Weight: 64 kg

DRUGS (1)
  1. VALTREX [Suspect]
     Active Substance: VALACYCLOVIR HYDROCHLORIDE
     Indication: HERPES VIRUS INFECTION
     Dosage: 1000 MG, BID
     Route: 048

REACTIONS (5)
  - Screaming [Recovered/Resolved]
  - Hypokinesia [Recovered/Resolved]
  - Motor dysfunction [Recovered/Resolved]
  - Crying [Recovered/Resolved]
  - Hallucination [Recovered/Resolved]
